FAERS Safety Report 8101100-5 (Version None)
Quarter: 2012Q1

REPORT INFORMATION
  Report Type: 
  Country: None (occurrence: None)
  Receive Date: 20120129
  Receipt Date: 20110908
  Transmission Date: 20120608
  Serious: No
  Sender: FDA-Public Use
  Company Number: US-ABBOTT-11P-163-0852917-00

PATIENT
  Age: 60 Year
  Sex: Female

DRUGS (4)
  1. PREDNISONE TAB [Suspect]
  2. HYDROCODONE EXTRA STRENGTH [Concomitant]
     Indication: ARTHRALGIA
     Dosage: THREE TIMES DAILY AS NEEDED
  3. HUMIRA [Suspect]
     Indication: PSORIATIC ARTHROPATHY
     Dates: start: 20090101
  4. LYRICA [Concomitant]
     Indication: FIBROMYALGIA
     Dosage: DAILY AT BEDTIME

REACTIONS (7)
  - ABDOMINAL PAIN UPPER [None]
  - HOT FLUSH [None]
  - WRONG TECHNIQUE IN DRUG USAGE PROCESS [None]
  - INJECTION SITE PAIN [None]
  - INCORRECT DOSE ADMINISTERED [None]
  - VIRAL INFECTION [None]
  - INCORRECT ROUTE OF DRUG ADMINISTRATION [None]
